FAERS Safety Report 16007539 (Version 2)
Quarter: 2019Q1

REPORT INFORMATION
  Report Type: Spontaneous
  Country: AR (occurrence: AR)
  Receive Date: 20190226
  Receipt Date: 20190319
  Transmission Date: 20190418
  Serious: Yes (Death, Hospitalization)
  Sender: FDA-Public Use
  Company Number: AR-JNJFOC-20190228784

PATIENT
  Sex: Male

DRUGS (1)
  1. IMBRUVICA [Suspect]
     Active Substance: IBRUTINIB
     Indication: CHRONIC LYMPHOCYTIC LEUKAEMIA
     Route: 065

REACTIONS (6)
  - Off label use [Unknown]
  - Chronic lymphocytic leukaemia [Fatal]
  - Drug ineffective [Unknown]
  - Incorrect dose administered [Unknown]
  - Tumour lysis syndrome [Unknown]
  - Retroperitoneal mass [Fatal]
